FAERS Safety Report 11752584 (Version 1)
Quarter: 2015Q4

REPORT INFORMATION
  Report Type: Report from Study
  Country: SE (occurrence: SE)
  Receive Date: 20151119
  Receipt Date: 20151119
  Transmission Date: 20160304
  Serious: Yes (Other)
  Sender: FDA-Public Use
  Company Number: SE-ROCHE-1662248

PATIENT
  Age: 70 Year
  Sex: Female
  Weight: 91 kg

DRUGS (17)
  1. ATENOLOL. [Concomitant]
     Active Substance: ATENOLOL
     Indication: ATRIAL FIBRILLATION
     Route: 065
     Dates: start: 20110101, end: 20140218
  2. ONDANSETRON [Concomitant]
     Active Substance: ONDANSETRON
     Indication: NAUSEA
     Dosage: MAX DOSE: 16 MG
     Route: 065
     Dates: start: 20140110
  3. RITUXIMAB [Suspect]
     Active Substance: RITUXIMAB
     Indication: NON-HODGKIN^S LYMPHOMA UNSPECIFIED HISTOLOGY INDOLENT
     Dosage: DATE OF MOST RECENT DOSE PRIOR TO SAE: 05/FEB/2014
     Route: 058
     Dates: start: 20140205
  4. KALCIUMKARBONAT [Concomitant]
     Indication: OSTEOPOROSIS PROPHYLAXIS
     Route: 065
     Dates: start: 20131217
  5. DABIGATRAN [Concomitant]
     Active Substance: DABIGATRAN
     Indication: ATRIAL FIBRILLATION
     Route: 065
     Dates: start: 20110601
  6. LOSARTAN. [Concomitant]
     Active Substance: LOSARTAN
     Indication: HYPERTENSION
     Route: 065
     Dates: start: 19980101, end: 20140218
  7. ESTRADIOL. [Concomitant]
     Active Substance: ESTRADIOL
     Indication: OOPHORECTOMY
     Route: 065
     Dates: start: 19920201
  8. FOLIC ACID. [Concomitant]
     Active Substance: FOLIC ACID
     Indication: PRODUCT USED FOR UNKNOWN INDICATION
     Route: 065
     Dates: start: 20090101
  9. LOSARTAN. [Concomitant]
     Active Substance: LOSARTAN
     Route: 065
     Dates: start: 20140218
  10. BENDAMUSTINE [Concomitant]
     Active Substance: BENDAMUSTINE
  11. OMEPRAZOLE. [Concomitant]
     Active Substance: OMEPRAZOLE
     Indication: GASTRITIS
     Route: 065
     Dates: start: 20140304
  12. RITUXIMAB [Suspect]
     Active Substance: RITUXIMAB
     Indication: NON-HODGKIN^S LYMPHOMA UNSPECIFIED HISTOLOGY INDOLENT
     Dosage: 375 MG/M2 IN CYCLE 1
     Route: 042
     Dates: start: 20140108
  13. KOLEKALCIFEROL [Concomitant]
     Indication: OSTEOPOROSIS PROPHYLAXIS
     Route: 065
     Dates: start: 20131217
  14. LEVOTYROXIN [Concomitant]
     Indication: HYPOTHYROIDISM
     Route: 065
     Dates: start: 19960601
  15. ATENOLOL. [Concomitant]
     Active Substance: ATENOLOL
     Route: 065
     Dates: start: 20140218
  16. METOKLOPRAMID [Concomitant]
     Indication: NAUSEA
     Route: 065
     Dates: start: 20131217, end: 20140716
  17. DIMETIKON [Concomitant]
     Indication: ABDOMINAL DISTENSION
     Dosage: MAX DOSE: 600 MG
     Route: 065
     Dates: start: 20140110

REACTIONS (1)
  - Atrial fibrillation [Recovered/Resolved]

NARRATIVE: CASE EVENT DATE: 20140205
